FAERS Safety Report 16128333 (Version 1)
Quarter: 2019Q1

REPORT INFORMATION
  Report Type: Report from Study
  Country: US (occurrence: US)
  Receive Date: 20190328
  Receipt Date: 20190328
  Transmission Date: 20190418
  Serious: Yes (Other)
  Sender: FDA-Public Use
  Company Number: US-ROCHE-2286084

PATIENT
  Sex: Male

DRUGS (2)
  1. VALCYTE [Suspect]
     Active Substance: VALGANCICLOVIR HYDROCHLORIDE
     Indication: RENAL TRANSPLANT
     Route: 065
  2. VALCYTE [Suspect]
     Active Substance: VALGANCICLOVIR HYDROCHLORIDE
     Dosage: DOSE INCREASED
     Route: 065

REACTIONS (1)
  - Cytomegalovirus infection [Unknown]
